FAERS Safety Report 6303386-6 (Version None)
Quarter: 2009Q3

REPORT INFORMATION
  Report Type: 
  Country: None (occurrence: None)
  Receive Date: 20090810
  Receipt Date: 20090803
  Transmission Date: 20100115
  Serious: Yes (Death, Hospitalization)
  Sender: FDA-Public Use
  Company Number: IT-CELGENEUS-083-21880-09061522

PATIENT
  Sex: Male

DRUGS (14)
  1. REVLIMID [Suspect]
     Indication: MULTIPLE MYELOMA
     Route: 048
     Dates: start: 20090506
  2. REVLIMID [Suspect]
     Route: 048
     Dates: start: 20090611, end: 20090618
  3. DEXAMETHASONE [Concomitant]
     Indication: MULTIPLE MYELOMA
     Route: 065
     Dates: start: 20090506
  4. DEXAMETHASONE [Concomitant]
     Route: 065
     Dates: start: 20090611, end: 20090618
  5. CLEXANE [Concomitant]
     Indication: PROPHYLAXIS
     Route: 058
     Dates: start: 20090611, end: 20090618
  6. CLEXANE [Concomitant]
     Route: 065
     Dates: start: 20090506, end: 20090610
  7. ANTRA [Concomitant]
     Indication: DRUG USE FOR UNKNOWN INDICATION
     Route: 065
  8. CALCIUM [Concomitant]
     Indication: DRUG USE FOR UNKNOWN INDICATION
     Route: 065
  9. ARANESP [Concomitant]
     Indication: DRUG USE FOR UNKNOWN INDICATION
     Route: 065
  10. BISPHOSPHONATES [Concomitant]
     Indication: DRUG USE FOR UNKNOWN INDICATION
     Route: 065
     Dates: start: 20090611
  11. BORTEZOMIB [Concomitant]
     Indication: DRUG USE FOR UNKNOWN INDICATION
     Route: 065
  12. ERYTHROPOETIN [Concomitant]
     Indication: DRUG USE FOR UNKNOWN INDICATION
     Route: 065
     Dates: start: 20090611
  13. MYELOSTIM [Concomitant]
     Indication: DRUG USE FOR UNKNOWN INDICATION
     Route: 065
     Dates: start: 20090511
  14. MYELOSTIM [Concomitant]
     Route: 065
     Dates: start: 20090521, end: 20090528

REACTIONS (3)
  - MULTI-ORGAN FAILURE [None]
  - MULTIPLE MYELOMA [None]
  - PANCYTOPENIA [None]
